FAERS Safety Report 4865741-0 (Version None)
Quarter: 2005Q4

REPORT INFORMATION
  Report Type: 
  Country: None (occurrence: None)
  Receive Date: 20051223
  Receipt Date: 20051208
  Transmission Date: 20060501
  Serious: Yes (Hospitalization)
  Sender: FDA-Public Use
  Company Number: AU-AMGEN-US160648

PATIENT
  Sex: Male
  Weight: 74.5 kg

DRUGS (10)
  1. NEUPOGEN [Suspect]
     Indication: CHEMOTHERAPY
     Dates: start: 20051029, end: 20051109
  2. GRANISETRON [Concomitant]
     Dates: start: 20051025, end: 20051028
  3. MESNA [Concomitant]
     Dates: start: 20051025, end: 20051028
  4. CYCLOPHOSPHAMIDE [Concomitant]
     Dates: start: 20051025, end: 20051028
  5. DEXAMETHASONE [Concomitant]
     Dates: start: 20051025, end: 20051108
  6. BACTRIM [Concomitant]
  7. FLUCONAZOLE [Concomitant]
  8. NEXIUM [Concomitant]
  9. METHOTREXATE [Concomitant]
     Dates: start: 20051027, end: 20051027
  10. VINCRISTINE [Concomitant]
     Dates: start: 20051027, end: 20051104

REACTIONS (3)
  - BACK PAIN [None]
  - BONE PAIN [None]
  - CHEST PAIN [None]
